FAERS Safety Report 4966941-1 (Version None)
Quarter: 2006Q2

REPORT INFORMATION
  Report Type: 
  Country: None (occurrence: None)
  Receive Date: 20060407
  Receipt Date: 20060201
  Transmission Date: 20061013
  Serious: Yes (Death, Disabling, Other)
  Sender: FDA-Public Use
  Company Number: US-MERCK-0602USA00530

PATIENT
  Age: 63 Year
  Sex: Male
  Weight: 170 kg

DRUGS (1)
  1. VIOXX [Suspect]
     Indication: OSTEOARTHRITIS
     Route: 048
     Dates: start: 19990910, end: 20031218

REACTIONS (3)
  - ARTHRALGIA [None]
  - DEATH [None]
  - MYOCARDIAL INFARCTION [None]
